FAERS Safety Report 4617799-1 (Version None)
Quarter: 2005Q1

REPORT INFORMATION
  Report Type: 
  Country: None (occurrence: None)
  Receive Date: 20050322
  Receipt Date: 20050309
  Transmission Date: 20050727
  Serious: Yes (Other)
  Sender: FDA-Public Use
  Company Number: 2005043263

PATIENT

DRUGS (1)
  1. CABERGOLINE [Suspect]
     Indication: PARKINSON'S DISEASE
     Dosage: ORAL, ^YEARS^
     Route: 048

REACTIONS (3)
  - PLEURAL FIBROSIS [None]
  - PULMONARY FIBROSIS [None]
  - SCAR [None]
